FAERS Safety Report 12488261 (Version 1)
Quarter: 2016Q2

REPORT INFORMATION
  Report Type: Spontaneous
  Country: GB (occurrence: GB)
  Receive Date: 20160622
  Receipt Date: 20160622
  Transmission Date: 20160815
  Serious: Yes (Other)
  Sender: FDA-Public Use
  Company Number: GB-GLAXOSMITHKLINE-B0493808A

PATIENT
  Age: 43 Year
  Sex: Male

DRUGS (11)
  1. DICLOFENAC [Concomitant]
     Active Substance: DICLOFENAC
     Indication: BACK PAIN
  2. PAROXETINE. [Suspect]
     Active Substance: PAROXETINE
     Dosage: 40 MG, QD
     Route: 065
     Dates: start: 20011017, end: 20040128
  3. SEROXAT [Suspect]
     Active Substance: PAROXETINE HYDROCHLORIDE
     Indication: DEPRESSION
     Dosage: UNK
     Dates: start: 1990, end: 20040109
  4. PROPANOLOL [Concomitant]
     Active Substance: PROPRANOLOL HYDROCHLORIDE
     Indication: MIGRAINE
     Dates: start: 200404
  5. PAROXETINE. [Suspect]
     Active Substance: PAROXETINE
     Indication: DEPRESSION
     Dosage: UNK
     Route: 065
     Dates: start: 19940926, end: 20040823
  6. INDERAL [Concomitant]
     Active Substance: PROPRANOLOL HYDROCHLORIDE
     Indication: MIGRAINE
     Dates: start: 200504
  7. INDERAL [Concomitant]
     Active Substance: PROPRANOLOL HYDROCHLORIDE
     Indication: ANXIETY
  8. SEROXAT [Suspect]
     Active Substance: PAROXETINE HYDROCHLORIDE
     Dosage: 40 MG, QD
     Route: 048
     Dates: start: 20011017, end: 20040128
  9. CODEINE / PARACETAMOL [Concomitant]
     Indication: HEADACHE
  10. SEROXAT [Suspect]
     Active Substance: PAROXETINE HYDROCHLORIDE
     Dosage: 20 MG, QD
     Route: 048
     Dates: start: 20000124
  11. PROPANOLOL [Concomitant]
     Active Substance: PROPRANOLOL HYDROCHLORIDE
     Indication: ANXIETY

REACTIONS (29)
  - Amnesia [Unknown]
  - Feeling hot [Unknown]
  - Nausea [Unknown]
  - Fall [Unknown]
  - Cold sweat [Unknown]
  - Depressed mood [Unknown]
  - Loss of consciousness [Unknown]
  - Suicidal ideation [Unknown]
  - Arthralgia [Unknown]
  - Hyperhidrosis [Unknown]
  - Paraesthesia [Unknown]
  - Headache [Unknown]
  - Musculoskeletal stiffness [Unknown]
  - Dizziness [Unknown]
  - Anger [Unknown]
  - Depression [Unknown]
  - Anxiety [Unknown]
  - Drug withdrawal syndrome [Unknown]
  - Sensory disturbance [Unknown]
  - Vision blurred [Unknown]
  - Metamorphopsia [Unknown]
  - Fatigue [Unknown]
  - Balance disorder [Unknown]
  - Confusional state [Unknown]
  - Mouth ulceration [Unknown]
  - Sleep disorder [Unknown]
  - Balance disorder [Unknown]
  - Myalgia [Unknown]
  - Weight decreased [Unknown]

NARRATIVE: CASE EVENT DATE: 2001
